FAERS Safety Report 9066246 (Version 1)
Quarter: 2013Q1

REPORT INFORMATION
  Report Type: Spontaneous
  Country: GB (occurrence: GB)
  Receive Date: 20130214
  Receipt Date: 20130214
  Transmission Date: 20140127
  Serious: Yes (Other)
  Sender: FDA-Public Use
  Company Number: GB-PFIZER INC-2013056509

PATIENT
  Age: 59 Year
  Sex: Male
  Weight: 92.52 kg

DRUGS (1)
  1. AMLODIPINE BESILATE [Suspect]
     Indication: HYPERTENSION
     Route: 048
     Dates: start: 20060720, end: 20130125

REACTIONS (9)
  - Dizziness [Recovering/Resolving]
  - Arthritis [Recovered/Resolved]
  - Depressed mood [Recovering/Resolving]
  - Agitation [Recovering/Resolving]
  - Visual impairment [Recovering/Resolving]
  - Hypoaesthesia [Recovering/Resolving]
  - Migraine [Unknown]
  - Anger [Recovering/Resolving]
  - Feeling abnormal [Recovered/Resolved]
